FAERS Safety Report 4270528-6 (Version None)
Quarter: 2004Q1

REPORT INFORMATION
  Report Type: 
  Country: None (occurrence: None)
  Receive Date: 20040114
  Receipt Date: 20031215
  Transmission Date: 20041129
  Serious: Yes (Hospitalization)
  Sender: FDA-Public Use
  Company Number: AU-GLAXOSMITHKLINE-B0317875A

PATIENT
  Age: 44 Year
  Sex: Male

DRUGS (1)
  1. ZYBAN [Suspect]
     Route: 048
     Dates: end: 20031212

REACTIONS (5)
  - DIZZINESS [None]
  - NAUSEA [None]
  - SWELLING FACE [None]
  - SYNCOPE [None]
  - URTICARIA [None]
